FAERS Safety Report 10332692 (Version 4)
Quarter: 2014Q4

REPORT INFORMATION
  Report Type: Spontaneous
  Country: JP (occurrence: JP)
  Receive Date: 20140722
  Receipt Date: 20141111
  Transmission Date: 20150528
  Serious: Yes (Other)
  Sender: FDA-Public Use
  Company Number: PHHY2014JP089448

PATIENT
  Age: 70 Year
  Sex: Male

DRUGS (1)
  1. ZOMETA [Suspect]
     Active Substance: ZOLEDRONIC ACID
     Indication: PLASMA CELL MYELOMA
     Dosage: 4 MG, UNK
     Route: 065
     Dates: start: 20080418, end: 20090310

REACTIONS (13)
  - Gingivitis [Recovered/Resolved]
  - Erythema [Recovered/Resolved]
  - Periodontitis [Recovered/Resolved]
  - Inflammatory pain [Recovered/Resolved]
  - Osteolysis [Recovered/Resolved]
  - Tenderness [Recovered/Resolved]
  - Swelling [Recovered/Resolved]
  - Pain [Recovered/Resolved]
  - Purulent discharge [Recovered/Resolved]
  - Fistula [Recovered/Resolved]
  - Osteonecrosis of jaw [Recovered/Resolved]
  - Exposed bone in jaw [Recovered/Resolved]
  - Primary sequestrum [Recovered/Resolved]

NARRATIVE: CASE EVENT DATE: 20090326
